FAERS Safety Report 6556349-X (Version None)
Quarter: 2010Q1

REPORT INFORMATION
  Report Type: 
  Country: None (occurrence: None)
  Receive Date: 20100128
  Receipt Date: 20091130
  Transmission Date: 20100710
  Serious: Yes (Hospitalization, Other)
  Sender: FDA-Public Use
  Company Number: US-TEVA-216535USA

PATIENT
  Sex: Female

DRUGS (1)
  1. COPAXONE [Suspect]
     Indication: MULTIPLE SCLEROSIS
     Route: 058

REACTIONS (6)
  - ANGIOEDEMA [None]
  - DRUG HYPERSENSITIVITY [None]
  - FLUSHING [None]
  - PHARYNGEAL OEDEMA [None]
  - RASH [None]
  - URTICARIA [None]
